FAERS Safety Report 8348123-9 (Version None)
Quarter: 2012Q2

REPORT INFORMATION
  Report Type: 
  Country: None (occurrence: None)
  Receive Date: 20120509
  Receipt Date: 20120504
  Transmission Date: 20120825
  Serious: Yes (Death, Hospitalization, Other)
  Sender: FDA-Public Use
  Company Number: PHHY2012FR030891

PATIENT
  Sex: Male
  Weight: 100 kg

DRUGS (5)
  1. INDAPAMIDE [Concomitant]
  2. ONBREZ [Suspect]
     Indication: CHRONIC OBSTRUCTIVE PULMONARY DISEASE
     Dates: start: 20111203, end: 20111213
  3. FLECAINIDE ACETATE [Concomitant]
  4. PRAVIGARD PAC (COPACKAGED) [Concomitant]
  5. FEBUXOSTAT [Concomitant]

REACTIONS (4)
  - EMBOLISM [None]
  - TACHYCARDIA [None]
  - ATRIAL FIBRILLATION [None]
  - HEMIPARESIS [None]
